FAERS Safety Report 23684912 (Version 1)
Quarter: 2024Q1

REPORT INFORMATION
  Report Type: Spontaneous
  Country: IT (occurrence: IT)
  Receive Date: 20240328
  Receipt Date: 20240328
  Transmission Date: 20240410
  Serious: Yes (Other)
  Sender: FDA-Public Use
  Company Number: None

PATIENT
  Age: 75 Year
  Sex: Female

DRUGS (7)
  1. XARELTO [Suspect]
     Active Substance: RIVAROXABAN
     Indication: Atrial fibrillation
     Dosage: 20 MG
     Route: 048
     Dates: start: 202208, end: 202304
  2. CANRENOIC ACID [Concomitant]
     Active Substance: CANRENOIC ACID
     Indication: Hypertension
     Dosage: UNK
     Route: 048
     Dates: start: 202303
  3. LEVOTHYROXINE SODIUM [Concomitant]
     Active Substance: LEVOTHYROXINE SODIUM
     Indication: Hypothyroidism
     Dosage: UNK
     Route: 048
     Dates: start: 202304
  4. ROSUVASTATINA + EZETIMIBA ALTER [Concomitant]
     Indication: Hypercholesterolaemia
     Dosage: ROSUVASTATINA HCS*28CPR 10MG. SCHEMA POSOLOGICO: 1 CPR AL DI
     Dates: start: 202304
  5. BISOPROLOL [Concomitant]
     Active Substance: BISOPROLOL\BISOPROLOL FUMARATE
  6. METFORMIN HYDROCHLORIDE [Concomitant]
     Active Substance: METFORMIN HYDROCHLORIDE
     Indication: Type 2 diabetes mellitus
     Dosage: UNK
     Route: 048
     Dates: start: 202102
  7. DEURSIL [Concomitant]
     Active Substance: URSODIOL
     Indication: Biliary dyspepsia
     Dosage: UNK
     Route: 048
     Dates: start: 202205

REACTIONS (1)
  - Renal failure [Recovering/Resolving]

NARRATIVE: CASE EVENT DATE: 20230401
